FAERS Safety Report 5708542-3 (Version None)
Quarter: 2008Q2

REPORT INFORMATION
  Report Type: 
  Country: None (occurrence: None)
  Receive Date: 20080417
  Receipt Date: 20080407
  Transmission Date: 20081010
  Serious: Yes (Other)
  Sender: FDA-Public Use
  Company Number: DE-PFIZER INC-2008031155

PATIENT
  Sex: Male

DRUGS (8)
  1. INSPRA [Suspect]
     Route: 048
  2. ASPIRIN [Concomitant]
  3. METOPROLOL SUCCINATE [Concomitant]
  4. SIMVASTATIN [Concomitant]
  5. TOREM [Concomitant]
  6. IDEOS [Concomitant]
  7. CARBIMAZOLE [Concomitant]
  8. DELIX [Concomitant]

REACTIONS (2)
  - GLOMERULONEPHRITIS [None]
  - RENAL FAILURE [None]
